FAERS Safety Report 6854166-4 (Version None)
Quarter: 2010Q3

REPORT INFORMATION
  Report Type: 
  Country: None (occurrence: None)
  Receive Date: 20100717
  Receipt Date: 20080211
  Transmission Date: 20110219
  Serious: Yes (Other)
  Sender: FDA-Public Use
  Company Number: US-PFIZER INC-2007100655

PATIENT
  Sex: Female
  Weight: 36.363 kg

DRUGS (2)
  1. CHANTIX [Suspect]
     Indication: EX-TOBACCO USER
     Dates: start: 20071101, end: 20071101
  2. XOPENEX [Concomitant]
     Indication: EMPHYSEMA
     Route: 055

REACTIONS (1)
  - HALLUCINATION [None]
